FAERS Safety Report 4520887-1 (Version None)
Quarter: 2004Q4

REPORT INFORMATION
  Report Type: 
  Country: None (occurrence: None)
  Receive Date: 20041206
  Receipt Date: 20041123
  Transmission Date: 20050328
  Serious: Yes (Hospitalization)
  Sender: FDA-Public Use
  Company Number: MEDI-0002464

PATIENT
  Age: 44 Year
  Sex: Female
  Weight: 152 kg

DRUGS (8)
  1. ETHYOL [Suspect]
     Indication: RADIOTHERAPY
     Dosage: 500 MG, 5 IN 1 WK, SUBCUTANEOUS
     Route: 058
     Dates: start: 20040930, end: 20041005
  2. ETHYOL [Suspect]
     Indication: RADIOTHERAPY
     Dosage: 500 MG, 5 IN 1 WK, SUBCUTANEOUS
     Route: 058
     Dates: start: 20041012, end: 20041012
  3. CISPLATIN [Concomitant]
  4. FLUOROURACIL [Concomitant]
  5. RADIATION THERAPY [Concomitant]
  6. DECADRON (DEXAMETHASONE0 [Concomitant]
  7. ATIVAN [Concomitant]
  8. ANZEMET (DOLASETRON MESILATE) [Concomitant]

REACTIONS (7)
  - BLOOD PRESSURE IMMEASURABLE [None]
  - DIZZINESS [None]
  - GENERALISED OEDEMA [None]
  - NAUSEA [None]
  - NEUTROPENIA [None]
  - TREMOR [None]
  - VOMITING [None]
